FAERS Safety Report 24208706 (Version 2)
Quarter: 2024Q3

REPORT INFORMATION
  Report Type: Other
  Country: US (occurrence: US)
  Receive Date: 20240814
  Receipt Date: 20240830
  Transmission Date: 20241016
  Serious: Yes (Hospitalization)
  Sender: ALVOGEN
  Company Number: US-ALVOGEN-2024095286

PATIENT
  Age: 1 Day
  Sex: Male

DRUGS (4)
  1. GABAPENTIN [Suspect]
     Active Substance: GABAPENTIN
     Indication: Product used for unknown indication
     Route: 064
  2. ESCITALOPRAM [Suspect]
     Active Substance: ESCITALOPRAM OXALATE
     Indication: Product used for unknown indication
     Route: 064
  3. CLONAZEPAM [Suspect]
     Active Substance: CLONAZEPAM
     Indication: Product used for unknown indication
     Route: 064
  4. METHADONE [Suspect]
     Active Substance: METHADONE HYDROCHLORIDE
     Indication: Product used for unknown indication
     Route: 064

REACTIONS (13)
  - Hypertonia neonatal [Recovered/Resolved]
  - Hypotonia neonatal [Recovered/Resolved]
  - Infantile apnoea [Recovered/Resolved]
  - Tremor neonatal [Recovered/Resolved]
  - Neonatal respiratory distress [Recovered/Resolved]
  - Agitation neonatal [Recovered/Resolved]
  - Infantile back arching [Recovered/Resolved]
  - Breath holding [Recovered/Resolved]
  - Tongue movement disturbance [Recovered/Resolved]
  - Drug withdrawal syndrome neonatal [Recovering/Resolving]
  - Poor feeding infant [Recovering/Resolving]
  - Toxicity to various agents [Recovering/Resolving]
  - Foetal exposure during pregnancy [Unknown]
